FAERS Safety Report 16017006 (Version 2)
Quarter: 2019Q1

REPORT INFORMATION
  Report Type: Spontaneous
  Country: JP (occurrence: JP)
  Receive Date: 20190228
  Receipt Date: 20190308
  Transmission Date: 20190418
  Serious: No
  Sender: FDA-Public Use
  Company Number: JP-TEVA-2019-JP-1015717

PATIENT
  Age: 85 Year
  Sex: Female

DRUGS (3)
  1. GASTER [Concomitant]
     Active Substance: FAMOTIDINE
     Route: 065
  2. LEVODOPA [Concomitant]
     Active Substance: LEVODOPA
     Route: 065
  3. AZILECT [Suspect]
     Active Substance: RASAGILINE MESYLATE
     Indication: PARKINSON^S DISEASE
     Dosage: 1 MILLIGRAM DAILY;
     Route: 048
     Dates: start: 20190131, end: 201902

REACTIONS (1)
  - Hepatic function abnormal [Recovering/Resolving]

NARRATIVE: CASE EVENT DATE: 20190210
